FAERS Safety Report 13660748 (Version 1)
Quarter: 2017Q2

REPORT INFORMATION
  Report Type: Spontaneous
  Country: US (occurrence: US)
  Receive Date: 20170616
  Receipt Date: 20170616
  Transmission Date: 20170830
  Serious: Yes (Life-Threatening, Hospitalization, Other)
  Sender: FDA-Public Use
  Company Number: US-APOTEX-2017AP012705

PATIENT
  Age: 15 Year
  Sex: Female

DRUGS (1)
  1. CARBAMAZEPINE. [Suspect]
     Active Substance: CARBAMAZEPINE
     Indication: PRODUCT USED FOR UNKNOWN INDICATION
     Dosage: UNK, EXTENTED RELEASE CAPSULE
     Route: 065

REACTIONS (11)
  - Electrocardiogram QT prolonged [Recovered/Resolved]
  - Ileus [Recovered/Resolved]
  - Respiratory failure [Recovered/Resolved]
  - Shock [Recovered/Resolved]
  - Coma [Recovered/Resolved]
  - Lactic acidosis [Recovered/Resolved]
  - Drug level increased [Recovered/Resolved]
  - Electroencephalogram abnormal [Recovered/Resolved]
  - Intentional overdose [Unknown]
  - Hypoxia [Recovered/Resolved]
  - Generalised tonic-clonic seizure [Recovered/Resolved]
